FAERS Safety Report 7411290-5 (Version None)
Quarter: 2011Q2

REPORT INFORMATION
  Report Type: 
  Country: None (occurrence: None)
  Receive Date: 20110413
  Receipt Date: 20100602
  Transmission Date: 20111010
  Serious: Yes (Other)
  Sender: FDA-Public Use
  Company Number: US-BRISTOL-MYERS SQUIBB COMPANY-15122138

PATIENT
  Age: 56 Year
  Sex: Male

DRUGS (5)
  1. SOLU-MEDROL [Concomitant]
     Indication: PREMEDICATION
  2. PEPCID [Concomitant]
     Indication: PREMEDICATION
  3. BENADRYL [Concomitant]
  4. DECADRON [Concomitant]
     Indication: PREMEDICATION
  5. ERBITUX [Suspect]
     Indication: COLON CANCER
     Route: 042
     Dates: start: 20100514

REACTIONS (1)
  - INFUSION RELATED REACTION [None]
